FAERS Safety Report 9284464 (Version 7)
Quarter: 2013Q3

REPORT INFORMATION
  Report Type: Spontaneous
  Country: DE (occurrence: DE)
  Receive Date: 20130510
  Receipt Date: 20130822
  Transmission Date: 20140515
  Serious: Yes (Hospitalization)
  Sender: FDA-Public Use
  Company Number: DE-BAXTER-2013BAX016975

PATIENT
  Age: 17 Year
  Sex: Male
  Weight: 82 kg

DRUGS (4)
  1. FEIBA NF 500 E [Suspect]
     Indication: FACTOR VIII DEFICIENCY
     Route: 042
  2. FEIBA NF 500 E [Suspect]
     Indication: FACTOR VIII INHIBITION
  3. NOVOSEVEN [Suspect]
     Indication: FACTOR VIII INHIBITION
     Route: 065
  4. OCTANATE [Suspect]
     Indication: FACTOR VIII INHIBITION
     Route: 065

REACTIONS (1)
  - Device related infection [Recovered/Resolved]
